FAERS Safety Report 25767566 (Version 1)
Quarter: 2025Q3

REPORT INFORMATION
  Report Type: Spontaneous
  Country: US (occurrence: None)
  Receive Date: 20250904
  Receipt Date: 20250904
  Transmission Date: 20251021
  Serious: Yes (Hospitalization)
  Sender: FDA-CTU
  Company Number: None

PATIENT
  Age: 74 Year
  Sex: Female

DRUGS (1)
  1. CHROMIUM PICOLINATE\CYANOCOBALAMIN\LEVOCARNITINE\SEMAGLUTIDE [Suspect]
     Active Substance: CHROMIUM PICOLINATE\CYANOCOBALAMIN\LEVOCARNITINE\SEMAGLUTIDE
     Dosage: FREQUENCY : DAILY;?
     Route: 060
     Dates: start: 20250613, end: 20250814

REACTIONS (1)
  - Pulmonary embolism [None]

NARRATIVE: CASE EVENT DATE: 20250814
